FAERS Safety Report 20035814 (Version 4)
Quarter: 2022Q2

REPORT INFORMATION
  Report Type: Spontaneous
  Country: JP (occurrence: JP)
  Receive Date: 20211105
  Receipt Date: 20220630
  Transmission Date: 20220721
  Serious: Yes (Other)
  Sender: FDA-Public Use
  Company Number: JP-UCBSA-2021051367

PATIENT

DRUGS (2)
  1. VIMPAT [Suspect]
     Active Substance: LACOSAMIDE
     Indication: Partial seizures
     Dosage: MEDIAN STARTING DOSE WAS 2.0 MG/KG (RANGE, 0.7-8.0 MG/KG),
     Route: 048
  2. VIMPAT [Suspect]
     Active Substance: LACOSAMIDE
     Indication: Epilepsy

REACTIONS (13)
  - Epilepsy [Recovering/Resolving]
  - Pancytopenia [Recovering/Resolving]
  - Somnolence [Recovering/Resolving]
  - Irritability [Recovering/Resolving]
  - Agitation [Recovering/Resolving]
  - Vomiting [Recovering/Resolving]
  - Diarrhoea [Recovering/Resolving]
  - Rash [Recovering/Resolving]
  - Balance disorder [Unknown]
  - Hepatic function abnormal [Recovering/Resolving]
  - Secretion discharge [Recovering/Resolving]
  - Drug ineffective [Unknown]
  - Off label use [Unknown]
